FAERS Safety Report 17338940 (Version 1)
Quarter: 2020Q1

REPORT INFORMATION
  Report Type: Spontaneous
  Country: US (occurrence: US)
  Receive Date: 20200113
  Receipt Date: 20200113
  Transmission Date: 20200409
  Serious: Yes (Hospitalization)
  Sender: FDA-Public Use
  Company Number: None

PATIENT
  Sex: Female

DRUGS (7)
  1. ATORVASTATIN [Concomitant]
     Active Substance: ATORVASTATIN
  2. SILDENAFIL TAB 20MG [Suspect]
     Active Substance: SILDENAFIL
     Indication: PULMONARY ARTERIAL HYPERTENSION
     Dosage: ?          OTHER FREQUENCY:Q8HRS ;?
     Route: 048
     Dates: start: 20190209
  3. BUMETANIDE. [Concomitant]
     Active Substance: BUMETANIDE
  4. CONTOUR TEST NEXT [Concomitant]
  5. CLOPIDORGEL [Concomitant]
  6. FEROSUL [Concomitant]
     Active Substance: FERROUS SULFATE
  7. GABAPENTIN. [Concomitant]
     Active Substance: GABAPENTIN

REACTIONS (2)
  - Asthenia [None]
  - Dyspnoea [None]
